FAERS Safety Report 18024252 (Version 1)
Quarter: 2020Q3

REPORT INFORMATION
  Report Type: Spontaneous
  Country: US (occurrence: US)
  Receive Date: 20200714
  Receipt Date: 20200714
  Transmission Date: 20201103
  Serious: Yes (Other)
  Sender: FDA-Public Use
  Company Number: None

PATIENT
  Age: 78 Year
  Sex: Female
  Weight: 54.5 kg

DRUGS (10)
  1. HYDROCODONE?ACETAMINOPHEN 10?325 MG PO 2 TIMES DAILY PRN [Concomitant]
     Dates: start: 20200711
  2. RIVAROXABAN 15 MG PO DAILY [Concomitant]
  3. PANTOPRAZOLE 40 MG PO DAILY [Concomitant]
  4. BUDESONIDE?FORMOTEROL 160?4.5 MCG/ACTUATION 2 PUFFS [Concomitant]
     Dates: start: 20200711
  5. BENAZEPRIL 40 MG PO NIGHTLY [Concomitant]
     Dates: start: 20200712
  6. CHLORTAHLIDONE 25 MG PO DAILY [Concomitant]
     Dates: start: 20200711
  7. CALCIUM CARBONATE 500 MG CHEWABLE TABLET [Concomitant]
     Dates: start: 20200712
  8. VITAMIN D 2000 UNITS PO 2 TIMES DAILY [Concomitant]
  9. REMDESIVIR. [Suspect]
     Active Substance: REMDESIVIR
     Indication: COVID-19 PNEUMONIA
     Route: 042
     Dates: start: 20200713, end: 20200714
  10. DILTIAZEM ER 120 MG PO 2 TIMES DAILY [Concomitant]
     Dates: start: 20200711

REACTIONS (2)
  - Chest pain [None]
  - Therapy cessation [None]

NARRATIVE: CASE EVENT DATE: 20200713
